FAERS Safety Report 4665769-X (Version None)
Quarter: 2005Q2

REPORT INFORMATION
  Report Type: 
  Country: None (occurrence: None)
  Receive Date: 20050517
  Receipt Date: 20050117
  Transmission Date: 20051028
  Serious: Yes (Death)
  Sender: FDA-Public Use
  Company Number: S05-USA-01040-01

PATIENT
  Age: 85 Year
  Sex: Female

DRUGS (12)
  1. NAMENDA [Suspect]
     Indication: DEMENTIA ALZHEIMER'S TYPE
     Dosage: 10 MG BID PO
     Route: 048
     Dates: start: 20040301
  2. QUININE [Concomitant]
  3. SENNA [Concomitant]
  4. DILTIAZEM [Concomitant]
  5. LISINOPRIL [Concomitant]
  6. SYNTHROID [Concomitant]
  7. ESOMEPRAZOLE [Concomitant]
  8. MEGESTROL [Concomitant]
  9. WARFARIN SODIUM [Concomitant]
  10. INSULIN [Concomitant]
  11. ZOCOR [Concomitant]
  12. METOPROLOL [Concomitant]

REACTIONS (1)
  - DEATH [None]
